FAERS Safety Report 12789414 (Version 1)
Quarter: 2016Q3

REPORT INFORMATION
  Report Type: Report from Study
  Country: US (occurrence: US)
  Receive Date: 20160928
  Receipt Date: 20160928
  Transmission Date: 20161109
  Serious: Yes (Hospitalization, Other)
  Sender: FDA-Public Use
  Company Number: US-AMGEN-USASL2016128085

PATIENT
  Age: 56 Year
  Sex: Male
  Weight: 238.1 kg

DRUGS (2)
  1. ENBREL [Suspect]
     Active Substance: ETANERCEPT
     Indication: PSORIATIC ARTHROPATHY
     Dosage: 100 MG, QWK
     Route: 065
  2. ENBREL [Suspect]
     Active Substance: ETANERCEPT
     Indication: RHEUMATOID ARTHRITIS

REACTIONS (12)
  - Migraine [Unknown]
  - Temporomandibular joint syndrome [Unknown]
  - Respiratory arrest [Unknown]
  - Diabetes mellitus [Not Recovered/Not Resolved]
  - Trigeminal neuralgia [Unknown]
  - Coma [Unknown]
  - Toxic encephalopathy [Unknown]
  - Memory impairment [Unknown]
  - Arthritis [Unknown]
  - Obesity [Recovering/Resolving]
  - Activities of daily living impaired [Unknown]
  - Occipital neuralgia [Unknown]

NARRATIVE: CASE EVENT DATE: 20121019
